FAERS Safety Report 9325848 (Version 1)
Quarter: 2013Q2

REPORT INFORMATION
  Report Type: Spontaneous
  Country: US (occurrence: US)
  Receive Date: 20130604
  Receipt Date: 20130604
  Transmission Date: 20140414
  Serious: No
  Sender: FDA-Public Use
  Company Number: US-JNJFOC-20130516056

PATIENT
  Sex: Male
  Weight: 86.18 kg

DRUGS (8)
  1. DURAGESIC [Suspect]
     Indication: NEUROPATHY PERIPHERAL
     Route: 062
  2. DURAGESIC [Suspect]
     Indication: NEUROPATHY PERIPHERAL
     Route: 062
  3. OXYCODONE [Concomitant]
     Indication: NEUROPATHY PERIPHERAL
     Dosage: 10 MG ONCE EVERY 4-6 HOURS
     Route: 048
  4. LANTUS [Concomitant]
     Indication: DIABETES MELLITUS
     Route: 058
     Dates: start: 1987
  5. NOVOLOG [Concomitant]
     Indication: DIABETES MELLITUS
     Route: 058
     Dates: start: 1987
  6. ACTOS [Concomitant]
     Indication: DIABETES MELLITUS
     Route: 065
  7. METFORMIN [Concomitant]
     Indication: DIABETES MELLITUS
     Route: 048
  8. CYMBALTA [Concomitant]
     Indication: PRODUCT USED FOR UNKNOWN INDICATION
     Route: 065

REACTIONS (5)
  - Therapeutic response decreased [Not Recovered/Not Resolved]
  - Product quality issue [Not Recovered/Not Resolved]
  - Product quality issue [Unknown]
  - Product quality issue [Unknown]
  - Poor quality drug administered [Unknown]
